FAERS Safety Report 8823060 (Version 2)
Quarter: 2014Q3

REPORT INFORMATION
  Report Type: Report from Study
  Country: US (occurrence: US)
  Receive Date: 20121003
  Receipt Date: 20140910
  Transmission Date: 20150326
  Serious: Yes (Other)
  Sender: FDA-Public Use
  Company Number: US-ROCHE-1134964

PATIENT
  Sex: Male

DRUGS (2)
  1. RITUXAN [Suspect]
     Active Substance: RITUXIMAB
     Indication: NON-HODGKIN^S LYMPHOMA
     Route: 042
     Dates: start: 20000522
  2. PROCRIT [Concomitant]
     Active Substance: ERYTHROPOIETIN
     Dosage: 6 CYCLES
     Route: 065
     Dates: end: 200001

REACTIONS (5)
  - Hypercalcaemia [Unknown]
  - Anaemia [Unknown]
  - Febrile neutropenia [Unknown]
  - Disease progression [Unknown]
  - Pallor [Unknown]
